FAERS Safety Report 6356464-X (Version None)
Quarter: 2009Q3

REPORT INFORMATION
  Report Type: 
  Country: None (occurrence: None)
  Receive Date: 20090915
  Receipt Date: 20090908
  Transmission Date: 20100115
  Serious: Yes (Hospitalization)
  Sender: FDA-Public Use
  Company Number: A0807054A

PATIENT
  Age: 66 Year
  Sex: Female

DRUGS (1)
  1. AVANDIA [Suspect]
     Indication: DIABETES MELLITUS
     Dosage: 4MG PER DAY
     Route: 048
     Dates: end: 20070101

REACTIONS (4)
  - CEREBROVASCULAR ACCIDENT [None]
  - EYE INJURY [None]
  - MYOCARDIAL INFARCTION [None]
  - STENT PLACEMENT [None]
